FAERS Safety Report 22811647 (Version 2)
Quarter: 2024Q1

REPORT INFORMATION
  Report Type: Spontaneous
  Country: FR (occurrence: FR)
  Receive Date: 20230810
  Receipt Date: 20240326
  Transmission Date: 20240410
  Serious: Yes (Other)
  Sender: FDA-Public Use
  Company Number: FR-BAUSCH-BL-2019-012474

PATIENT
  Age: 78 Year
  Sex: Female

DRUGS (26)
  1. REFRESH CELLUVISC [Suspect]
     Active Substance: CARBOXYMETHYLCELLULOSE SODIUM
     Indication: Postoperative care
     Route: 047
     Dates: start: 20190413, end: 20190416
  2. REFRESH CELLUVISC [Suspect]
     Active Substance: CARBOXYMETHYLCELLULOSE SODIUM
     Indication: Postoperative care
     Dosage: UNK (ONCE AT BEDTIME)
     Route: 047
     Dates: start: 20190516, end: 2019
  3. REFRESH CELLUVISC [Suspect]
     Active Substance: CARBOXYMETHYLCELLULOSE SODIUM
     Indication: Postoperative care
     Dosage: IN THE EVENING, RESTARTED
     Route: 047
     Dates: start: 2019
  4. TOBRADEX [Suspect]
     Active Substance: DEXAMETHASONE\TOBRAMYCIN
     Indication: Postoperative care
     Dosage: STOPPED ON 13/APR/2019 ONLY FOR THE RIGHT EYE
     Route: 047
     Dates: start: 20190313, end: 20190416
  5. TOBRADEX [Suspect]
     Active Substance: DEXAMETHASONE\TOBRAMYCIN
     Indication: Postoperative care
     Route: 047
     Dates: start: 20190502, end: 2019
  6. HYALURONATE SODIUM [Suspect]
     Active Substance: HYALURONATE SODIUM
     Indication: Eye pain
     Dosage: UNK (USE IN LEFT EYE)?STERILE SOLUTION FOR TOPICAL OPHTHALMIC USE; FOR 5 DAYS
     Route: 047
     Dates: start: 2019, end: 20190416
  7. TROPICAMIDE [Suspect]
     Active Substance: TROPICAMIDE
     Indication: Postoperative care
     Dosage: PRESCRIBED FOR 8 DAYS; 1 DROP 2 TIMES PER DAY
     Route: 047
     Dates: start: 20190313, end: 20190416
  8. INDOMETHACIN [Suspect]
     Active Substance: INDOMETHACIN
     Indication: Preoperative care
     Route: 047
     Dates: start: 20190310, end: 20190413
  9. INDOMETHACIN [Suspect]
     Active Substance: INDOMETHACIN
     Indication: Preoperative care
     Route: 047
     Dates: start: 201904, end: 201904
  10. BORIC ACID\SODIUM BORATE [Suspect]
     Active Substance: BORIC ACID\SODIUM BORATE
     Indication: Postoperative care
     Dosage: UNK, QD (IN SINGLE DOSE UNITS)
     Route: 047
     Dates: start: 20190313, end: 20190416
  11. HYALURONATE SODIUM\SODIUM CHLORIDE [Suspect]
     Active Substance: HYALURONATE SODIUM\SODIUM CHLORIDE
     Indication: Eye oedema
     Dosage: USE IN LEFT EYE
     Route: 047
     Dates: start: 20190410, end: 20190416
  12. HYALURONATE SODIUM\SODIUM CHLORIDE [Suspect]
     Active Substance: HYALURONATE SODIUM\SODIUM CHLORIDE
     Indication: Eye oedema
     Dosage: STOPPED ON 13/APR/2019 ONLY FOR THE RIGHT EYE
     Route: 047
     Dates: start: 20190313, end: 20190416
  13. HYALURONATE SODIUM\SODIUM CHLORIDE [Suspect]
     Active Substance: HYALURONATE SODIUM\SODIUM CHLORIDE
     Indication: Eye oedema
     Dosage: 1 DRP, QD
     Route: 047
     Dates: start: 20190502, end: 2019
  14. VITABACT [Suspect]
     Active Substance: PICLOXYDINE DIHYDROCHLORIDE
     Indication: Preoperative care
     Route: 047
     Dates: start: 20190310, end: 20190312
  15. HYALURONATE SODIUM\TREHALOSE [Suspect]
     Active Substance: HYALURONATE SODIUM\TREHALOSE
     Indication: Product used for unknown indication
     Dosage: 1 DROP IN BOTH EYES
     Route: 065
     Dates: start: 20190516
  16. CYANOCOBALAMIN [Suspect]
     Active Substance: CYANOCOBALAMIN
     Indication: Postoperative care
     Dosage: DAILY DOSE OF 4 DROPS IN BOTH EYES
     Route: 047
     Dates: start: 20190502
  17. CYANOCOBALAMIN [Suspect]
     Active Substance: CYANOCOBALAMIN
     Indication: Postoperative care
     Dosage: IN SINGLE DOSE UNITS
     Route: 047
     Dates: start: 20190413, end: 20190416
  18. RETINOL [Suspect]
     Active Substance: RETINOL
     Indication: Postoperative care
     Dosage: PRESCRIBED FOR 8 DAYS; 1 DROP 2 TIMES PER DAY
     Route: 047
     Dates: start: 20190313, end: 20190416
  19. RETINOL [Suspect]
     Active Substance: RETINOL
     Indication: Postoperative care
     Dosage: DAILY DOSE OF 4 DROPS IN BOTH EYES
     Route: 047
     Dates: start: 20190502
  20. TOBREX [Suspect]
     Active Substance: TOBRAMYCIN
     Indication: Product used for unknown indication
     Route: 065
     Dates: start: 20190421, end: 20190502
  21. TOBREX [Suspect]
     Active Substance: TOBRAMYCIN
     Indication: Product used for unknown indication
     Route: 047
     Dates: start: 20190313
  22. SYSTANE BALANCE [Suspect]
     Active Substance: PROPYLENE GLYCOL
     Indication: Product used for unknown indication
     Dosage: 1 DROP IN BOTH EYES
     Route: 065
     Dates: start: 20190516
  23. SYSTANE BALANCE [Suspect]
     Active Substance: PROPYLENE GLYCOL
     Indication: Product used for unknown indication
     Dosage: UNK (IN THE EVENING, RESTARTED)
     Route: 047
     Dates: start: 2019
  24. CARBOMER [Suspect]
     Active Substance: CARBOMER
     Indication: Product used for unknown indication
     Dosage: STERILE SOLUTION FOR TOPICAL OPHTHALMIC USE; FOR 5 DAYS?ONCE AT BEDTIME
     Route: 065
     Dates: start: 20190516, end: 2019
  25. INSULIN NOS [Concomitant]
     Active Substance: INSULIN NOS
     Indication: Product used for unknown indication
     Dosage: MORNING AND EVENING
     Route: 065
  26. RETINOL [Suspect]
     Active Substance: RETINOL
     Indication: Product used for unknown indication
     Route: 065
     Dates: start: 201904, end: 20190502

REACTIONS (10)
  - Keratitis [Recovered/Resolved]
  - Eye inflammation [Unknown]
  - Ocular hypertension [Unknown]
  - Eye oedema [Unknown]
  - Eye pain [Not Recovered/Not Resolved]
  - Photophobia [Not Recovered/Not Resolved]
  - Sinusitis [Unknown]
  - Foreign body sensation in eyes [Not Recovered/Not Resolved]
  - Eye irritation [Not Recovered/Not Resolved]
  - Off label use [Unknown]

NARRATIVE: CASE EVENT DATE: 20190101
